FAERS Safety Report 7526687-2 (Version None)
Quarter: 2011Q2

REPORT INFORMATION
  Report Type: 
  Country: None (occurrence: None)
  Receive Date: 20110606
  Receipt Date: 20110601
  Transmission Date: 20111010
  Serious: Yes (Hospitalization, Other)
  Sender: FDA-Public Use
  Company Number: TR-ELI_LILLY_AND_COMPANY-TR201105008515

PATIENT
  Age: 65 Year
  Sex: Female

DRUGS (3)
  1. BYETTA [Suspect]
     Dosage: 5 UG, BID
  2. ORLISTAT [Concomitant]
     Indication: OBESITY
  3. METFORMIN HCL [Concomitant]

REACTIONS (5)
  - PULMONARY EMBOLISM [None]
  - TACHYCARDIA [None]
  - NAUSEA [None]
  - WEIGHT DECREASED [None]
  - VOMITING [None]
